FAERS Safety Report 16729380 (Version 1)
Quarter: 2019Q3

REPORT INFORMATION
  Report Type: Spontaneous
  Country: PH (occurrence: PH)
  Receive Date: 20190822
  Receipt Date: 20190822
  Transmission Date: 20191005
  Serious: Yes (Life-Threatening, Hospitalization, Other)
  Sender: FDA-Public Use
  Company Number: PH-PFIZER INC-2019355003

PATIENT
  Sex: Female

DRUGS (1)
  1. EPIRUBICIN HCL [Suspect]
     Active Substance: EPIRUBICIN HYDROCHLORIDE
     Indication: BREAST CANCER STAGE III
     Dosage: UNK

REACTIONS (8)
  - Renal impairment [Unknown]
  - Asthenia [Unknown]
  - Infection [Unknown]
  - Pyrexia [Unknown]
  - Dyspnoea [Unknown]
  - Cardiac arrest [Unknown]
  - Burning sensation [Recovered/Resolved]
  - Blood glucose increased [Unknown]
